FAERS Safety Report 13647686 (Version 1)
Quarter: 2017Q2

REPORT INFORMATION
  Report Type: Spontaneous
  Country: US (occurrence: US)
  Receive Date: 20170613
  Receipt Date: 20170613
  Transmission Date: 20170830
  Serious: No
  Sender: FDA-Public Use
  Company Number: US-AMNEAL PHARMACEUTICALS-2017AMN00468

PATIENT
  Age: 60 Year
  Sex: Female
  Weight: 60.77 kg

DRUGS (2)
  1. ESTRADIOL. [Suspect]
     Active Substance: ESTRADIOL
     Indication: VULVOVAGINAL DRYNESS
     Dosage: 10 MCG, 2X/WEEK
     Route: 067
     Dates: start: 20170128, end: 20170301
  2. ESTRADIOL. [Suspect]
     Active Substance: ESTRADIOL
     Dosage: 10 MCG, 2X/WEEK
     Route: 067
     Dates: start: 20170331, end: 20170406

REACTIONS (2)
  - Hypoaesthesia oral [Not Recovered/Not Resolved]
  - Dysgeusia [Not Recovered/Not Resolved]

NARRATIVE: CASE EVENT DATE: 20170128
